FAERS Safety Report 16013477 (Version 1)
Quarter: 2019Q1

REPORT INFORMATION
  Report Type: Spontaneous
  Country: US (occurrence: US)
  Receive Date: 20190227
  Receipt Date: 20190227
  Transmission Date: 20190418
  Serious: Yes (Death)
  Sender: FDA-Public Use
  Company Number: US-ELEFSEE PHARMACEUTICALS INTERNATIONAL-US-2019WTD000009

PATIENT
  Age: 51 Year
  Sex: Female

DRUGS (2)
  1. EVZIO [Concomitant]
     Active Substance: NALOXONE HYDROCHLORIDE
     Indication: PRODUCT USED FOR UNKNOWN INDICATION
  2. LAZANDA [Suspect]
     Active Substance: FENTANYL CITRATE
     Indication: TUMOUR PAIN
     Dosage: 100 ?G, 3 TIMES PER DAY AS NEEDED
     Route: 045
     Dates: start: 20180802

REACTIONS (1)
  - Death [Fatal]

NARRATIVE: CASE EVENT DATE: 20190204
